FAERS Safety Report 9222935 (Version 8)
Quarter: 2013Q4

REPORT INFORMATION
  Report Type: Spontaneous
  Country: JP (occurrence: JP)
  Receive Date: 20130410
  Receipt Date: 20131203
  Transmission Date: 20140711
  Serious: Yes (Disabling, Other)
  Sender: FDA-Public Use
  Company Number: JP-JNJFOC-20130403484

PATIENT
  Age: 57 Year
  Sex: Male

DRUGS (7)
  1. INVEGA [Suspect]
     Indication: SCHIZOPHRENIA
     Route: 048
     Dates: start: 20120719, end: 20121224
  2. INVEGA [Suspect]
     Indication: SCHIZOPHRENIA
     Route: 048
     Dates: start: 20120705, end: 20120718
  3. RIBALL [Concomitant]
     Indication: GOUT
     Route: 048
     Dates: end: 20121224
  4. HIBERNA [Concomitant]
     Indication: PARKINSONISM
     Route: 048
     Dates: end: 20121224
  5. URSO [Concomitant]
     Indication: HEPATIC FUNCTION ABNORMAL
     Route: 048
     Dates: end: 20121227
  6. GLUTATHIONE [Concomitant]
     Indication: HEPATIC FUNCTION ABNORMAL
     Route: 048
     Dates: end: 20121224
  7. CLOFEKTON [Concomitant]
     Indication: SCHIZOPHRENIA
     Route: 048
     Dates: start: 20120705, end: 20120718

REACTIONS (8)
  - Neuroleptic malignant syndrome [Recovered/Resolved]
  - Polydipsia [Recovered/Resolved]
  - Atonic seizures [Recovered/Resolved]
  - Rhabdomyolysis [Recovered/Resolved]
  - Grand mal convulsion [Recovered/Resolved]
  - Water intoxication [Recovered/Resolved]
  - Feeling abnormal [Unknown]
  - Weight increased [Unknown]
